FAERS Safety Report 11638599 (Version 2)
Quarter: 2019Q1

REPORT INFORMATION
  Report Type: Report from Study
  Country: US (occurrence: US)
  Receive Date: 20151016
  Receipt Date: 20190227
  Transmission Date: 20190417
  Serious: Yes (Hospitalization)
  Sender: FDA-Public Use
  Company Number: US-ACTELION-A-NJ2015-125572

PATIENT
  Age: 81 Year
  Sex: Female

DRUGS (5)
  1. CALTRATE [Concomitant]
     Active Substance: CALCIUM CARBONATE
  2. CENTRUM SILVER [Concomitant]
     Active Substance: MINERALS\VITAMINS
     Dosage: UNK, QD
  3. OXYGEN. [Concomitant]
     Active Substance: OXYGEN
     Dosage: 2.5 L, PER MIN
  4. TRACLEER [Suspect]
     Active Substance: BOSENTAN
     Indication: PULMONARY ARTERIAL HYPERTENSION
     Dosage: 62.5 MG, BID
     Route: 048
     Dates: start: 2014
  5. RIOCIGUAT. [Concomitant]
     Active Substance: RIOCIGUAT
     Dosage: UNK

REACTIONS (13)
  - Diabetes mellitus [Recovering/Resolving]
  - Cyst [Recovered/Resolved]
  - Hip arthroplasty [Unknown]
  - Back disorder [Unknown]
  - Stent placement [Unknown]
  - Fall [Recovering/Resolving]
  - Nasopharyngitis [Recovered/Resolved]
  - Scratch [Unknown]
  - Cyst removal [Unknown]
  - Contusion [Unknown]
  - Adverse event [Unknown]
  - Hip fracture [Recovered/Resolved]
  - Pneumonia [Recovered/Resolved]

NARRATIVE: CASE EVENT DATE: 2015
